FAERS Safety Report 8488670-2 (Version None)
Quarter: 2012Q3

REPORT INFORMATION
  Report Type: 
  Country: None (occurrence: None)
  Receive Date: 20120705
  Receipt Date: 20120702
  Transmission Date: 20120928
  Serious: Yes (Death)
  Sender: FDA-Public Use
  Company Number: FR-PFIZER INC-2012157561

PATIENT
  Age: 60 Year
  Sex: Male

DRUGS (6)
  1. LEVOTHYROXINE SODIUM [Concomitant]
     Dosage: 150 UG, UNK
  2. IRBESARTAN [Concomitant]
     Dosage: 75 MG, UNK
  3. SUTENT [Suspect]
     Dosage: UNK
     Route: 048
     Dates: start: 20071001
  4. DIAMICRON [Concomitant]
  5. OMEPRAZOLE [Concomitant]
  6. SUTENT [Suspect]
     Indication: RENAL CANCER METASTATIC
     Dosage: 37.5 MG, 1X/DAY (THREE WEEKS ON FIVE)
     Route: 048
     Dates: start: 20060301, end: 20070601

REACTIONS (1)
  - MYOCARDIAL INFARCTION [None]
